FAERS Safety Report 5904133-X (Version None)
Quarter: 2008Q3

REPORT INFORMATION
  Report Type: 
  Country: None (occurrence: None)
  Receive Date: 20080919
  Receipt Date: 20080609
  Transmission Date: 20090109
  Serious: Yes (Other)
  Sender: FDA-Public Use
  Company Number: US-WYE-H04419908

PATIENT
  Sex: Female

DRUGS (3)
  1. PRISTIQ [Suspect]
     Indication: DEPRESSION
     Dosage: 25 MG 1X PER 1 DAY, ORAL; 50 MG 1X PER 1 DAY, ORAL
     Route: 048
     Dates: start: 20080604, end: 20080604
  2. PRISTIQ [Suspect]
     Indication: DEPRESSION
     Dosage: 25 MG 1X PER 1 DAY, ORAL; 50 MG 1X PER 1 DAY, ORAL
     Route: 048
     Dates: start: 20080605
  3. DESYREL [Concomitant]

REACTIONS (2)
  - BLOOD SODIUM DECREASED [None]
  - NAUSEA [None]
